FAERS Safety Report 11025993 (Version 1)
Quarter: 2015Q2

REPORT INFORMATION
  Report Type: Spontaneous
  Country: US (occurrence: None)
  Receive Date: 20150413
  Receipt Date: 20150413
  Transmission Date: 20150821
  Serious: Yes (Hospitalization)
  Sender: FDA-Public Use
  Company Number: None

PATIENT
  Age: 63 Year
  Sex: Male
  Weight: 119.2 kg

DRUGS (2)
  1. ATORVASTATIN [Suspect]
     Active Substance: ATORVASTATIN
     Indication: MUSCULOSKELETAL CHEST PAIN
     Route: 048
     Dates: start: 20130701, end: 20130911
  2. ATORVASTATIN [Suspect]
     Active Substance: ATORVASTATIN
     Indication: RHABDOMYOLYSIS
     Route: 048
     Dates: start: 20130701, end: 20130911

REACTIONS (2)
  - Angina pectoris [None]
  - Rhabdomyolysis [None]

NARRATIVE: CASE EVENT DATE: 20130911
